FAERS Safety Report 4646935-6 (Version None)
Quarter: 2005Q2

REPORT INFORMATION
  Report Type: 
  Country: None (occurrence: None)
  Receive Date: 20050331
  Receipt Date: 20050215
  Transmission Date: 20051028
  Serious: No
  Sender: FDA-Public Use
  Company Number: 05P-163-0290646-00

PATIENT
  Age: 71 Year
  Sex: Female
  Weight: 54.4316 kg

DRUGS (2)
  1. HUMIRA [Suspect]
     Indication: RHEUMATOID ARTHRITIS
     Dosage: 40 MG, 1 IN 1 WK, SUBCUTANEOUS
     Route: 058
     Dates: start: 20040601, end: 20041101
  2. ASPIRIN [Concomitant]

REACTIONS (2)
  - BLISTER [None]
  - DYSPEPSIA [None]
